FAERS Safety Report 4349813-5 (Version None)
Quarter: 2004Q2

REPORT INFORMATION
  Report Type: 
  Country: None (occurrence: None)
  Receive Date: 20040426
  Receipt Date: 20040419
  Transmission Date: 20050107
  Serious: Yes (Hospitalization)
  Sender: FDA-Public Use
  Company Number: KII-2001-0007784

PATIENT
  Sex: Female

DRUGS (2)
  1. OXYCONTIN [Suspect]
     Indication: PAIN
     Dosage: 10 MG, Q12H
  2. VICODIN [Suspect]
     Indication: PAIN
     Dosage: 1 TABLET PRN

REACTIONS (2)
  - DRUG DETOXIFICATION [None]
  - INADEQUATE ANALGESIA [None]
